FAERS Safety Report 6821409-2 (Version None)
Quarter: 2010Q3

REPORT INFORMATION
  Report Type: 
  Country: None (occurrence: None)
  Receive Date: 20100707
  Receipt Date: 20080926
  Transmission Date: 20110219
  Serious: No
  Sender: FDA-Public Use
  Company Number: US-PFIZER INC-2008064117

PATIENT
  Sex: Male
  Weight: 77.3 kg

DRUGS (4)
  1. ZOLOFT [Suspect]
     Indication: AGITATION
     Route: 048
     Dates: start: 20080630, end: 20080726
  2. ZOLOFT [Suspect]
     Indication: COGNITIVE DISORDER
  3. LIPITOR [Concomitant]
     Indication: BLOOD CHOLESTEROL ABNORMAL
  4. NORVASC [Concomitant]
     Indication: BLOOD PRESSURE ABNORMAL

REACTIONS (5)
  - ADVERSE DRUG REACTION [None]
  - AKATHISIA [None]
  - MUSCULOSKELETAL DISCOMFORT [None]
  - NERVOUSNESS [None]
  - RESTLESSNESS [None]
